FAERS Safety Report 15928660 (Version 1)
Quarter: 2019Q1

REPORT INFORMATION
  Report Type: Report from Study
  Country: US (occurrence: US)
  Receive Date: 20190206
  Receipt Date: 20190206
  Transmission Date: 20190417
  Serious: Yes (Death)
  Sender: FDA-Public Use
  Company Number: US-EXELIXIS-CABO-19018572

PATIENT
  Sex: Female

DRUGS (7)
  1. IMIPRAMINE [Concomitant]
     Active Substance: IMIPRAMINE
  2. LISINOPRIL. [Concomitant]
     Active Substance: LISINOPRIL
  3. MIRALAX [Concomitant]
     Active Substance: POLYETHYLENE GLYCOL 3350
  4. OMEPRAZOLE. [Concomitant]
     Active Substance: OMEPRAZOLE
  5. CABOMETYX [Suspect]
     Active Substance: CABOZANTINIB S-MALATE
     Indication: RENAL CANCER
     Dosage: 60 MG, QD
     Route: 048
     Dates: start: 20180327
  6. DEXAMETHASONE. [Concomitant]
     Active Substance: DEXAMETHASONE
  7. HYDROCODONE/ACETAMINOPHEN [Concomitant]
     Active Substance: ACETAMINOPHEN\HYDROCODONE

REACTIONS (1)
  - Death [Fatal]
